FAERS Safety Report 20757185 (Version 4)
Quarter: 2022Q3

REPORT INFORMATION
  Report Type: Spontaneous
  Country: AR (occurrence: AR)
  Receive Date: 20220427
  Receipt Date: 20220718
  Transmission Date: 20221026
  Serious: Yes (Hospitalization, Other)
  Sender: FDA-Public Use
  Company Number: AR-GLAXOSMITHKLINE-AR2022AMR068566

PATIENT

DRUGS (1)
  1. NUCALA [Suspect]
     Active Substance: MEPOLIZUMAB
     Indication: Asthma
     Dosage: 100 MG/ML
     Route: 058
     Dates: start: 20220404, end: 20220502

REACTIONS (9)
  - Viral infection [Not Recovered/Not Resolved]
  - Disease complication [Not Recovered/Not Resolved]
  - Arterial disorder [Not Recovered/Not Resolved]
  - Cardiac disorder [Not Recovered/Not Resolved]
  - Endocarditis [Unknown]
  - Cardiac operation [Unknown]
  - Bacterial infection [Not Recovered/Not Resolved]
  - Aortic anastomosis [Unknown]
  - Coagulopathy [Not Recovered/Not Resolved]

NARRATIVE: CASE EVENT DATE: 20220401
